FAERS Safety Report 8864058 (Version 1)
Quarter: 2012Q4

REPORT INFORMATION
  Report Type: 
  Country: US (occurrence: US)
  Receive Date: 20121024
  Receipt Date: 20121024
  Transmission Date: 20130627
  Serious: No
  Sender: FDA-Public Use
  Company Number: US-AMGEN-USASP2011065532

PATIENT
  Sex: Male

DRUGS (12)
  1. COQ-10 [Concomitant]
     Dosage: 100 mg, UNK
  2. VITAMIN D [Concomitant]
     Dosage: 50000 IU, UNK
  3. ENBREL [Suspect]
     Indication: PRODUCT USED FOR UNKNOWN INDICATION
     Dosage: 50 mg, qwk
     Route: 058
  4. DIOVAN [Concomitant]
     Dosage: 80 mg, UNK
  5. FOLIC ACID [Concomitant]
     Dosage: 1 mg, UNK
  6. VITAMIN B6 [Concomitant]
     Dosage: 250 mg, UNK
  7. MULTAQ [Concomitant]
     Dosage: 400 mg, UNK
  8. GEMFIBROZIL [Concomitant]
     Dosage: 600 mg, UNK
  9. TERAZOSIN [Concomitant]
     Dosage: 10 mg, UNK
  10. METOPROLOL [Concomitant]
     Dosage: 25 mg, UNK
  11. SULFASALAZIN [Concomitant]
     Dosage: 500 mg, UNK
  12. PRADAXA [Concomitant]
     Dosage: 75 mg, UNK

REACTIONS (1)
  - Rash [Unknown]
